FAERS Safety Report 9112953 (Version 8)
Quarter: 2014Q1

REPORT INFORMATION
  Report Type: Report from Study
  Country: US (occurrence: US)
  Receive Date: 20130211
  Receipt Date: 20140123
  Transmission Date: 20141002
  Serious: Yes (Life-Threatening, Hospitalization)
  Sender: FDA-Public Use
  Company Number: US-ROCHE-GNE269735

PATIENT
  Age: 47 Year
  Sex: Female
  Weight: 73.09 kg

DRUGS (15)
  1. XOLAIR [Suspect]
     Indication: ASTHMA
     Dosage: DATE OF MOST RECENT DOSE :22/SEP/2008
     Route: 058
     Dates: start: 20070101, end: 20080922
  2. SINGULAIR [Concomitant]
     Indication: PRODUCT USED FOR UNKNOWN INDICATION
     Dosage: 10 MG, QHS
     Route: 048
     Dates: start: 20070108
  3. ADVAIR [Concomitant]
     Indication: ASTHMA
     Dosage: 1 PUFF, BID, DOSE=1 PUFF, DAILY DOSE=2 PUFF, 500/50 MG
     Route: 048
     Dates: start: 20070108
  4. ALBUTEROL INHALER [Concomitant]
     Indication: ASTHMA
     Dosage: DOSE 1 PUFF.
     Route: 065
     Dates: start: 2007
  5. SPIRIVA [Concomitant]
     Indication: PRODUCT USED FOR UNKNOWN INDICATION
     Dosage: UNK
     Route: 048
     Dates: start: 20070430
  6. ACCUNEB [Concomitant]
     Indication: PRODUCT USED FOR UNKNOWN INDICATION
     Dosage: 1 AMP, PRN, DOSE=1 AMP
     Route: 065
     Dates: start: 20070618
  7. ZYRTEC [Concomitant]
     Indication: PRODUCT USED FOR UNKNOWN INDICATION
     Dosage: 10 MG, QHS
     Route: 048
     Dates: start: 20080714
  8. CUTIVATE [Concomitant]
     Indication: PRODUCT USED FOR UNKNOWN INDICATION
     Dosage: UNK
     Route: 065
     Dates: start: 20070618
  9. DOXEPIN CREAM [Concomitant]
     Indication: PRODUCT USED FOR UNKNOWN INDICATION
     Dosage: UNK
     Route: 065
     Dates: start: 20070618
  10. ATARAX (UNITED STATES) [Concomitant]
     Indication: PRODUCT USED FOR UNKNOWN INDICATION
     Dosage: 10 MG, PRN
     Route: 048
     Dates: start: 20070108
  11. EPIPEN [Concomitant]
     Indication: ANAPHYLACTIC REACTION
     Dosage: UNK
     Route: 058
     Dates: start: 20070108
  12. BENADRYL (UNITED STATES) [Concomitant]
     Indication: ANAPHYLACTIC REACTION
     Dosage: 50 MG, PRN
     Route: 065
     Dates: start: 20070108
  13. PREDNISONE [Concomitant]
     Indication: ANAPHYLACTIC REACTION
     Dosage: UNK
     Route: 065
     Dates: start: 20070108
  14. PREDNISONE [Concomitant]
     Route: 065
     Dates: start: 20130117, end: 20130128
  15. PROVENTIL [Concomitant]
     Indication: ASTHMA
     Dosage: 2 PUFFS INHALED AS NEEDED
     Route: 050
     Dates: start: 2007

REACTIONS (2)
  - Anaphylactic reaction [Recovered/Resolved]
  - Asthma [Unknown]
